FAERS Safety Report 17923930 (Version 2)
Quarter: 2020Q3

REPORT INFORMATION
  Report Type: Spontaneous
  Country: SG (occurrence: SG)
  Receive Date: 20200622
  Receipt Date: 20200706
  Transmission Date: 20201103
  Serious: Yes (Other)
  Sender: FDA-Public Use
  Company Number: SG-ASTRAZENECA-2020SE78626

PATIENT
  Age: 19256 Day
  Sex: Male

DRUGS (1)
  1. SYMBICORT [Suspect]
     Active Substance: BUDESONIDE\FORMOTEROL FUMARATE DIHYDRATE
     Dosage: 160/4.5, 120 UG UNKNOWN FREQUENCY UNKNOWN
     Route: 055

REACTIONS (2)
  - Device malfunction [Unknown]
  - Tongue coated [Unknown]

NARRATIVE: CASE EVENT DATE: 20200614
